FAERS Safety Report 26199258 (Version 1)
Quarter: 2025Q4

REPORT INFORMATION
  Report Type: Other
  Country: GB (occurrence: GB)
  Receive Date: 20251225
  Receipt Date: 20251225
  Transmission Date: 20260117
  Serious: Yes (Other)
  Sender: GLENMARK
  Company Number: None

PATIENT
  Age: 80 Year
  Sex: Female

DRUGS (1)
  1. DAPAGLIFLOZIN [Suspect]
     Active Substance: DAPAGLIFLOZIN
     Indication: Product used for unknown indication
     Dosage: 10 MILLIGRAM (MEDICATION WAS NOT TAKEN- INTERCEPTED.PRESCRIBED 5MG AND WAS DISPENSED 10MG)
     Route: 065

REACTIONS (4)
  - Medication error [Unknown]
  - Medication error [Unknown]
  - Product dispensing error [Unknown]
  - Intercepted product dispensing error [Unknown]
